FAERS Safety Report 5473981-5 (Version None)
Quarter: 2007Q3

REPORT INFORMATION
  Report Type: 
  Country: None (occurrence: None)
  Receive Date: 20070830
  Receipt Date: 20070112
  Transmission Date: 20080115
  Serious: Yes (Other)
  Sender: FDA-Public Use
  Company Number: 233991

PATIENT
  Age: 54 Year
  Sex: Female
  Weight: 85.7 kg

DRUGS (11)
  1. XOLAIR [Suspect]
     Indication: ASTHMA
     Dosage: 375 MG, Q2W, SUBCUTANEOUS
     Route: 058
     Dates: start: 20060224
  2. LEVAQUIN [Concomitant]
  3. GLUCOPHAGE [Concomitant]
  4. ADVAIR DISKUS 100/50 [Concomitant]
  5. COMBIVENT [Concomitant]
  6. MAVIK [Concomitant]
  7. NASONEX [Concomitant]
  8. SINGULAIR [Concomitant]
  9. CLARINEX [Concomitant]
  10. PREDNISONE [Concomitant]
  11. PHENERGAN VC WITH CODEINE (CODEINE PHOSPHATE, PHENYLEPHRINE HYDROCHLOR [Concomitant]

REACTIONS (1)
  - METASTATIC NEOPLASM [None]
